FAERS Safety Report 10501716 (Version 1)
Quarter: 2014Q4

REPORT INFORMATION
  Report Type: Report from Study
  Country: JP (occurrence: JP)
  Receive Date: 20141007
  Receipt Date: 20141007
  Transmission Date: 20150528
  Serious: Yes (Other)
  Sender: FDA-Public Use
  Company Number: JP-US-EMD SERONO, INC.-7146796

PATIENT
  Sex: Male
  Weight: 66 kg

DRUGS (9)
  1. GONAL-F [Suspect]
     Active Substance: FOLLITROPIN
     Route: 058
     Dates: start: 20071020, end: 20071220
  2. HCG [Suspect]
     Active Substance: GONADOTROPHIN, CHORIONIC
     Route: 065
     Dates: start: 20071008
  3. CORTRIL                            /00028601/ [Concomitant]
     Indication: HYPOPITUITARISM
     Route: 065
  4. GONAL-F [Suspect]
     Active Substance: FOLLITROPIN
     Indication: HYPOGONADISM MALE
     Route: 058
     Dates: start: 20070526
  5. GONAL-F [Suspect]
     Active Substance: FOLLITROPIN
     Route: 058
     Dates: start: 20070714
  6. HCG [Suspect]
     Active Substance: GONADOTROPHIN, CHORIONIC
     Route: 065
     Dates: start: 20070714
  7. THYRADIN S [Concomitant]
     Active Substance: LEVOTHYROXINE SODIUM
     Indication: HYPOPITUITARISM
     Route: 048
  8. DESMOPRESSIN [Concomitant]
     Active Substance: DESMOPRESSIN
     Indication: HYPOPITUITARISM
     Route: 065
  9. HCG [Suspect]
     Active Substance: GONADOTROPHIN, CHORIONIC
     Indication: HYPOGONADISM MALE
     Route: 065
     Dates: start: 20070414

REACTIONS (2)
  - Brain neoplasm [Unknown]
  - Gynaecomastia [Recovered/Resolved]

NARRATIVE: CASE EVENT DATE: 20070714
